FAERS Safety Report 5831617-5 (Version None)
Quarter: 2008Q3

REPORT INFORMATION
  Report Type: 
  Country: None (occurrence: None)
  Receive Date: 20080801
  Receipt Date: 20080721
  Transmission Date: 20090109
  Serious: Yes (Other)
  Sender: FDA-Public Use
  Company Number: US-PFIZER INC-2008063026

PATIENT
  Sex: Male
  Weight: 95 kg

DRUGS (4)
  1. CHANTIX [Suspect]
     Indication: TOBACCO USER
  2. PAXIL [Concomitant]
     Indication: DEPRESSION
  3. ANTIHYPERTENSIVES [Concomitant]
  4. ALL OTHER THERAPEUTIC PRODUCTS [Concomitant]

REACTIONS (3)
  - AGITATION [None]
  - PERSONALITY CHANGE [None]
  - SCREAMING [None]
